FAERS Safety Report 9728047 (Version 1)
Quarter: 2013Q4

REPORT INFORMATION
  Report Type: Spontaneous
  Country: IT (occurrence: None)
  Receive Date: 20131127
  Receipt Date: 20131127
  Transmission Date: 20140711
  Serious: Yes (Other)
  Sender: FDA-Public Use
  Company Number: 2013EU010004

PATIENT
  Age: 60 Year
  Sex: Male

DRUGS (5)
  1. MICAFUNGIN [Suspect]
     Indication: CANDIDA INFECTION
     Dosage: 100 MG, D, IV NOS
     Route: 042
     Dates: start: 20131030, end: 20131110
  2. MICAFUNGIN [Suspect]
     Indication: ESCHERICHIA INFECTION
     Dosage: 100 MG, D, IV NOS
     Route: 042
     Dates: start: 20131030, end: 20131110
  3. MEROPENEM (MEROPENEM) [Concomitant]
  4. TEICOPLANINA (TEICOPLANIN) [Concomitant]
  5. TACROLIMUS (TACROLIMUS) [Concomitant]

REACTIONS (1)
  - Hyponatraemia [None]
